FAERS Safety Report 14940839 (Version 1)
Quarter: 2018Q2

REPORT INFORMATION
  Report Type: Spontaneous
  Country: DE (occurrence: DE)
  Receive Date: 20180525
  Receipt Date: 20180525
  Transmission Date: 20180711
  Serious: Yes (Other)
  Sender: FDA-Public Use
  Company Number: DE-ELI_LILLY_AND_COMPANY-DE201805010497

PATIENT
  Age: 21 Year
  Sex: Male

DRUGS (8)
  1. SEROQUEL [Suspect]
     Active Substance: QUETIAPINE FUMARATE
     Indication: PRODUCT USED FOR UNKNOWN INDICATION
     Dosage: 400 MG, UNKNOWN
     Route: 065
  2. ZOLOFT [Concomitant]
     Active Substance: SERTRALINE HYDROCHLORIDE
     Indication: PRODUCT USED FOR UNKNOWN INDICATION
     Dosage: UNK UNK, UNKNOWN
     Route: 065
  3. EFFEXOR [Suspect]
     Active Substance: VENLAFAXINE HYDROCHLORIDE
     Indication: PRODUCT USED FOR UNKNOWN INDICATION
     Dosage: 150 MG, UNKNOWN
     Route: 065
  4. ROHYPNOL [Suspect]
     Active Substance: FLUNITRAZEPAM
     Indication: DRUG WITHDRAWAL SYNDROME
     Dosage: UNK UNK, UNKNOWN
     Route: 065
  5. FLUNITRAZEPAM [Suspect]
     Active Substance: FLUNITRAZEPAM
     Indication: PRODUCT USED FOR UNKNOWN INDICATION
     Dosage: UNK, UNKNOWN
     Route: 065
  6. ANAFRANIL [Suspect]
     Active Substance: CLOMIPRAMINE HYDROCHLORIDE
     Indication: PRODUCT USED FOR UNKNOWN INDICATION
     Dosage: 150 MG, UNKNOWN
     Route: 065
  7. ZYPREXA [Suspect]
     Active Substance: OLANZAPINE
     Indication: PRODUCT USED FOR UNKNOWN INDICATION
     Dosage: 20 MG, UNKNOWN
     Route: 065
  8. TAVOR EXPIDET [Suspect]
     Active Substance: LORAZEPAM
     Indication: PRODUCT USED FOR UNKNOWN INDICATION
     Dosage: UNK UNK, DAILY
     Route: 065

REACTIONS (25)
  - Mental disorder [Unknown]
  - Fatigue [Unknown]
  - Sleep disorder [Unknown]
  - Abnormal behaviour [Unknown]
  - Nightmare [Unknown]
  - Memory impairment [Unknown]
  - Seizure [Unknown]
  - Paraesthesia [Unknown]
  - Dyssomnia [Unknown]
  - Somnolence [Unknown]
  - Weight increased [Unknown]
  - Abnormal dreams [Unknown]
  - Insomnia [Unknown]
  - Feeling abnormal [Unknown]
  - Conduction disorder [Unknown]
  - Drug dependence [Unknown]
  - Eating disorder [Unknown]
  - Arrhythmia [Unknown]
  - Vertigo [Unknown]
  - Disinhibition [Unknown]
  - Euphoric mood [Unknown]
  - Feeling jittery [Unknown]
  - Amnesia [Unknown]
  - Increased appetite [Unknown]
  - Alopecia [Unknown]
